FAERS Safety Report 12442731 (Version 2)
Quarter: 2016Q2

REPORT INFORMATION
  Report Type: Spontaneous
  Country: FR (occurrence: FR)
  Receive Date: 20160607
  Receipt Date: 20160629
  Transmission Date: 20160815
  Serious: Yes (Other)
  Sender: FDA-Public Use
  Company Number: FR-JNJFOC-20160602476

PATIENT
  Age: 43 Year
  Sex: Female
  Weight: 60 kg

DRUGS (1)
  1. SIMPONI [Suspect]
     Active Substance: GOLIMUMAB
     Indication: GASTROINTESTINAL DISORDER
     Route: 058
     Dates: start: 20151214

REACTIONS (3)
  - Off label use [Unknown]
  - Depression [Unknown]
  - Product use issue [Unknown]

NARRATIVE: CASE EVENT DATE: 20151214
